FAERS Safety Report 21413593 (Version 1)
Quarter: 2022Q4

REPORT INFORMATION
  Report Type: Spontaneous
  Country: US (occurrence: US)
  Receive Date: 20221006
  Receipt Date: 20221006
  Transmission Date: 20230113
  Serious: Yes (Hospitalization, Other)
  Sender: FDA-Public Use
  Company Number: US-SA-SAC20220929001374

PATIENT
  Age: 58 Year
  Sex: Female
  Weight: 41.5 kg

DRUGS (4)
  1. TAXOTERE [Suspect]
     Active Substance: DOCETAXEL
     Indication: Neoplasm malignant
     Dosage: 35 MG, QW
     Dates: start: 20220329
  2. ABEQUOLIXRON [Suspect]
     Active Substance: ABEQUOLIXRON
     Indication: Neoplasm malignant
     Dosage: 120 MG, QD
     Route: 048
     Dates: start: 20220329, end: 20220913
  3. SODIUM CHLORIDE [Concomitant]
     Active Substance: SODIUM CHLORIDE
     Dosage: 75ML/HR (A TOTAL OF 2500 ML)
  4. MAGNESIUM SULFATE [Concomitant]
     Active Substance: MAGNESIUM SULFATE
     Dosage: UNK UNK, TOTAL

REACTIONS (6)
  - Dehydration [Unknown]
  - Failure to thrive [Unknown]
  - Normal pressure hydrocephalus [Unknown]
  - Fatigue [Unknown]
  - Diarrhoea [Recovered/Resolved]
  - Decreased appetite [Unknown]

NARRATIVE: CASE EVENT DATE: 20220101
